FAERS Safety Report 4491871-1 (Version None)
Quarter: 2004Q4

REPORT INFORMATION
  Report Type: 
  Country: None (occurrence: None)
  Receive Date: 20041028
  Receipt Date: 20041028
  Transmission Date: 20050328
  Serious: Yes (Hospitalization)
  Sender: FDA-Public Use
  Company Number: None

PATIENT
  Age: 61 Year
  Sex: Female
  Weight: 56.9 kg

DRUGS (9)
  1. IRESSA 250 MG QD PO [Suspect]
     Indication: PANCREATIC CARCINOMA
     Dosage: CONCURRENTLY
     Dates: start: 20040930
  2. XELODA [Suspect]
     Dosage: W/ RT
  3. ZOFRAN [Concomitant]
  4. MARINOL [Concomitant]
  5. DECADRON [Concomitant]
  6. ATIVAN [Concomitant]
  7. SCOPOLAMINE PATCH [Concomitant]
  8. ZOLOFT [Concomitant]
  9. IMODIUM [Concomitant]

REACTIONS (3)
  - DEHYDRATION [None]
  - POST PROCEDURAL NAUSEA [None]
  - POST PROCEDURAL VOMITING [None]
